FAERS Safety Report 9637361 (Version 3)
Quarter: 2013Q4

REPORT INFORMATION
  Report Type: Spontaneous
  Country: KR (occurrence: KR)
  Receive Date: 20131022
  Receipt Date: 20131121
  Transmission Date: 20140711
  Serious: Yes (Death)
  Sender: FDA-Public Use
  Company Number: PHHY2013KR117719

PATIENT
  Age: 53 Year
  Sex: Male

DRUGS (3)
  1. EVEROLIMUS [Suspect]
     Indication: GASTRIC CANCER
     Dosage: 5 MG, BID GIVEN ON DAYS 1 TO 21 WITHOUT REST
     Route: 048
     Dates: start: 20101001, end: 20111227
  2. EVEROLIMUS [Suspect]
     Indication: OFF LABEL USE
  3. CAPECITABINE [Suspect]
     Indication: GASTRIC CANCER
     Dosage: 650 MG/M2, BID GIVEN ON DAYS 1 TO 14 FOR GASTRIC CANCER, FOLLOWED BY A 7 DAY REST PERIOD.

REACTIONS (7)
  - Malignant neoplasm progression [Fatal]
  - Neuropathy peripheral [Unknown]
  - Alanine aminotransferase increased [Unknown]
  - Skin discolouration [Unknown]
  - Dry skin [Unknown]
  - Neutropenia [Unknown]
  - Therapeutic response decreased [Unknown]
